FAERS Safety Report 8339080-X (Version None)
Quarter: 2012Q2

REPORT INFORMATION
  Report Type: 
  Country: None (occurrence: None)
  Receive Date: 20120507
  Receipt Date: 20120502
  Transmission Date: 20120825
  Serious: Yes (Death, Hospitalization)
  Sender: FDA-Public Use
  Company Number: US-BAYER-2012-040357

PATIENT
  Age: 76 Year
  Sex: Male
  Weight: 70 kg

DRUGS (18)
  1. NIASPAN [Concomitant]
     Dosage: 750 MG ER, UNK
     Route: 048
  2. PLAVIX [Concomitant]
     Dosage: 75 MG, UNK
     Route: 048
  3. ARICEPT [Concomitant]
     Dosage: 10 MG, UNK
     Route: 048
  4. AMBIEN [Concomitant]
     Dosage: 10 MG, UNK
     Route: 048
  5. ADVAIR DISKUS 100/50 [Concomitant]
     Dosage: 250/50, UNK
  6. PRIMIDONE [Concomitant]
     Dosage: 50 MG, UNK
     Route: 048
  7. ACETAMINOPHEN [Concomitant]
     Dosage: 500 MG, UNK
     Route: 048
  8. CLARITIN-D [Concomitant]
     Dosage: 5-120 MG, UNK
     Route: 048
  9. BETASERON [Suspect]
     Dosage: 0.25 MG, QOD
     Route: 058
  10. SIMVASTATIN [Concomitant]
     Dosage: 5 MG, UNK
     Route: 048
  11. COMBIVENT [Concomitant]
  12. MAGNESIUM [Concomitant]
     Dosage: 300 MG, UNK
     Route: 048
  13. HYDROCHLOROTHIAZIDE [Concomitant]
     Dosage: 12.5 MG, UNK
     Route: 048
  14. TRAMADOL HYDROCHLORIDE [Concomitant]
     Dosage: 50 MG, UNK
     Route: 048
  15. OMEPRAZOLE [Concomitant]
     Dosage: 20 MG, UNK
     Route: 048
  16. FINASTERIDE [Concomitant]
     Dosage: 5 MG, UNK
     Route: 048
  17. FLOMAX [Concomitant]
     Dosage: 0.4 MG, UNK
     Route: 048
  18. VITAMIN D [Concomitant]
     Dosage: 1000 UNITS, UNK
     Route: 048

REACTIONS (3)
  - DEATH [None]
  - PNEUMONIA [None]
  - URINARY TRACT INFECTION [None]
